FAERS Safety Report 15243957 (Version 1)
Quarter: 2018Q3

REPORT INFORMATION
  Report Type: Report from Study
  Country: BR (occurrence: BR)
  Receive Date: 20180806
  Receipt Date: 20180806
  Transmission Date: 20181010
  Serious: Yes (Other)
  Sender: FDA-Public Use
  Company Number: BR-EMD SERONO-E2B_90053678

PATIENT
  Sex: Female

DRUGS (2)
  1. REBIF [Suspect]
     Active Substance: INTERFERON BETA-1A
     Indication: MULTIPLE SCLEROSIS
     Route: 058
     Dates: start: 20170611
  2. REBIF [Suspect]
     Active Substance: INTERFERON BETA-1A
     Dosage: DOSE INCREASED
     Route: 058

REACTIONS (2)
  - Paralysis [Unknown]
  - Gait disturbance [Not Recovered/Not Resolved]
